FAERS Safety Report 5612616-5 (Version None)
Quarter: 2008Q1

REPORT INFORMATION
  Report Type: 
  Country: None (occurrence: None)
  Receive Date: 20080204
  Receipt Date: 20080122
  Transmission Date: 20080703
  Serious: Yes (Hospitalization)
  Sender: FDA-Public Use
  Company Number: B0505095A

PATIENT
  Age: 76 Year
  Sex: Female

DRUGS (10)
  1. AUGMENTIN '125' [Suspect]
     Indication: SKIN INFLAMMATION
     Route: 048
     Dates: start: 20070530
  2. ROVAMYCINE [Suspect]
     Route: 065
  3. CLAFORAN [Suspect]
     Route: 065
  4. AMLOR [Concomitant]
     Route: 065
  5. TAHOR [Concomitant]
     Indication: DRUG USE FOR UNKNOWN INDICATION
     Route: 065
  6. PREVISCAN [Concomitant]
     Indication: DRUG USE FOR UNKNOWN INDICATION
     Route: 065
  7. SPECIAFOLDINE [Concomitant]
     Indication: DRUG USE FOR UNKNOWN INDICATION
     Route: 065
  8. FUROSEMIDE [Concomitant]
     Indication: DRUG USE FOR UNKNOWN INDICATION
     Route: 065
  9. OROCAL [Concomitant]
     Indication: DRUG USE FOR UNKNOWN INDICATION
     Route: 065
  10. LIORESAL [Concomitant]
     Indication: DRUG USE FOR UNKNOWN INDICATION
     Route: 065

REACTIONS (7)
  - CLOSTRIDIUM DIFFICILE COLITIS [None]
  - DERMATITIS [None]
  - DIARRHOEA [None]
  - DRUG ERUPTION [None]
  - IMPETIGO [None]
  - LUNG DISORDER [None]
  - SKIN INFLAMMATION [None]
